FAERS Safety Report 13697536 (Version 1)
Quarter: 2017Q2

REPORT INFORMATION
  Report Type: Report from Study
  Country: US (occurrence: US)
  Receive Date: 20170628
  Receipt Date: 20170628
  Transmission Date: 20170830
  Serious: Yes (Hospitalization)
  Sender: FDA-Public Use
  Company Number: US-JNJFOC-20170623489

PATIENT
  Age: 60 Year
  Sex: Female

DRUGS (9)
  1. ELIQUIS [Concomitant]
     Active Substance: APIXABAN
  2. GLYCERYL TRINITRATE [Concomitant]
     Active Substance: NITROGLYCERIN
  3. IMBRUVICA [Suspect]
     Active Substance: IBRUTINIB
     Indication: CHRONIC LYMPHOCYTIC LEUKAEMIA
     Route: 048
     Dates: start: 20170411
  4. MECLIZINE [Concomitant]
     Active Substance: MECLIZINE HYDROCHLORIDE
  5. LISINOPRIL AND HYDROCHLOROTHIAZIDE [Concomitant]
     Active Substance: HYDROCHLOROTHIAZIDE\LISINOPRIL
  6. ATORVASTATIN [Concomitant]
     Active Substance: ATORVASTATIN
  7. ACETAMIN [Concomitant]
     Active Substance: ACETAMINOPHEN
  8. OMEPRAZOLE. [Concomitant]
     Active Substance: OMEPRAZOLE
  9. VITAMIN D [Concomitant]
     Active Substance: CHOLECALCIFEROL

REACTIONS (2)
  - Dehydration [Recovered/Resolved]
  - Heart rate irregular [Unknown]

NARRATIVE: CASE EVENT DATE: 201706
